FAERS Safety Report 25510902 (Version 2)
Quarter: 2025Q4

REPORT INFORMATION
  Report Type: Report from Study
  Country: CA (occurrence: CA)
  Receive Date: 20250703
  Receipt Date: 20251004
  Transmission Date: 20260118
  Serious: Yes (Disabling, Other)
  Sender: NOVARTIS
  Company Number: CA-002147023-NVSC2025CA102413

PATIENT
  Age: 76 Year
  Sex: Male

DRUGS (3)
  1. LEQVIO [Suspect]
     Active Substance: INCLISIRAN SODIUM
     Indication: Ischaemic cardiomyopathy
     Dosage: 284 MG, OTHER (BASELINE, 3 MONTHS AND EVERY 6 MONTHS THEREAFTER)
     Route: 058
     Dates: start: 20240301
  2. LEQVIO [Suspect]
     Active Substance: INCLISIRAN SODIUM
     Indication: Coronary artery disease
     Dosage: UNK (2ND SHOT)
     Route: 065
     Dates: start: 20240601
  3. LEQVIO [Suspect]
     Active Substance: INCLISIRAN SODIUM
     Dosage: UNK (3 SHOT)
     Route: 065
     Dates: start: 20241201

REACTIONS (2)
  - Cataract [Unknown]
  - Visual impairment [Recovered/Resolved with Sequelae]
